FAERS Safety Report 11428342 (Version 1)
Quarter: 2015Q3

REPORT INFORMATION
  Report Type: Spontaneous
  Country: US (occurrence: US)
  Receive Date: 20150828
  Receipt Date: 20150828
  Transmission Date: 20151125
  Serious: No
  Sender: FDA-Public Use
  Company Number: US-ROCHE-1219106

PATIENT
  Age: 42 Year
  Sex: Female
  Weight: 90.8 kg

DRUGS (15)
  1. MELOXICAM. [Concomitant]
     Active Substance: MELOXICAM
     Route: 065
  2. KETOCONAZOLE CREAM [Concomitant]
     Active Substance: KETOCONAZOLE
     Route: 065
  3. HYDROXYZINE [Concomitant]
     Active Substance: HYDROXYZINE\HYDROXYZINE HYDROCHLORIDE
     Route: 065
  4. PROTONIX [Concomitant]
     Active Substance: PANTOPRAZOLE SODIUM
     Route: 065
  5. TOPIRAMATE. [Concomitant]
     Active Substance: TOPIRAMATE
     Route: 065
  6. PEGASYS [Suspect]
     Active Substance: PEGINTERFERON ALFA-2A
     Indication: PRODUCT USED FOR UNKNOWN INDICATION
     Dosage: FOR 12 WEEKS
     Route: 058
  7. NEUPOGEN [Concomitant]
     Active Substance: FILGRASTIM
     Dosage: 0.8 ML
     Route: 065
  8. ANUSOL HC (HYDROCORTISONE ACETATE) [Concomitant]
  9. RIBAVIRIN. [Suspect]
     Active Substance: RIBAVIRIN
     Indication: PRODUCT USED FOR UNKNOWN INDICATION
     Dosage: FOR 12 WEEKS
     Route: 048
  10. INCIVEK [Suspect]
     Active Substance: TELAPREVIR
     Dosage: FOR 12 WEEKS  (24/APR/2013: LAST WEEK OF INCIVEK)
     Route: 065
  11. CYMBALTA [Concomitant]
     Active Substance: DULOXETINE HYDROCHLORIDE
     Route: 065
  12. ALLEGRA [Concomitant]
     Active Substance: FEXOFENADINE HYDROCHLORIDE
     Route: 065
  13. AMBIEN [Concomitant]
     Active Substance: ZOLPIDEM TARTRATE
     Route: 065
  14. TRAMADOL/TRAMADOL HYDROCHLORIDE [Concomitant]
     Active Substance: TRAMADOL HYDROCHLORIDE
     Route: 065
  15. PROMETHAZINE HYDROCHLORIDE. [Concomitant]
     Active Substance: PROMETHAZINE HYDROCHLORIDE
     Route: 065

REACTIONS (8)
  - Conjunctivitis [Not Recovered/Not Resolved]
  - Skin swelling [Unknown]
  - Pain [Unknown]
  - Eyelid irritation [Not Recovered/Not Resolved]
  - Influenza [Unknown]
  - Eye ulcer [Unknown]
  - Oedema genital [Not Recovered/Not Resolved]
  - Erythema [Unknown]

NARRATIVE: CASE EVENT DATE: 20130412
